FAERS Safety Report 8011333-4 (Version None)
Quarter: 2011Q4

REPORT INFORMATION
  Report Type: 
  Country: None (occurrence: None)
  Receive Date: 20111228
  Receipt Date: 20111228
  Transmission Date: 20120403
  Serious: No
  Sender: FDA-Public Use
  Company Number: None

PATIENT
  Sex: Female

DRUGS (1)
  1. PROLIA [Suspect]
     Indication: OSTEOPOROSIS
     Dosage: 60MG
     Route: 058

REACTIONS (4)
  - TREMOR [None]
  - HYPOGLYCAEMIA [None]
  - FEELING ABNORMAL [None]
  - PAIN IN JAW [None]
